FAERS Safety Report 6727621-5 (Version None)
Quarter: 2010Q2

REPORT INFORMATION
  Report Type: 
  Country: None (occurrence: None)
  Receive Date: 20100517
  Receipt Date: 20100517
  Transmission Date: 20101027
  Serious: Yes (Hospitalization)
  Sender: FDA-Public Use
  Company Number: None

PATIENT
  Age: 13 Month
  Sex: Male
  Weight: 9.0719 kg

DRUGS (2)
  1. CHILDREN'S MOTRIN [Suspect]
     Indication: IRRITABILITY
     Dosage: 1.875 8 HOURS PO ; EVERY 8 HRS
     Route: 048
     Dates: start: 20100309, end: 20100322
  2. CHILDREN'S MOTRIN [Suspect]
     Indication: PYREXIA
     Dosage: 1.875 8 HOURS PO ; EVERY 8 HRS
     Route: 048
     Dates: start: 20100309, end: 20100322

REACTIONS (2)
  - PRODUCT QUALITY ISSUE [None]
  - RED BLOOD CELL SEDIMENTATION RATE INCREASED [None]
